FAERS Safety Report 23820701 (Version 1)
Quarter: 2024Q2

REPORT INFORMATION
  Report Type: Spontaneous
  Country: US (occurrence: None)
  Receive Date: 20240503
  Receipt Date: 20240503
  Transmission Date: 20240715
  Serious: No
  Sender: FDA-Public Use
  Company Number: None

PATIENT
  Age: 55 Year
  Sex: Female
  Weight: 65.25 kg

DRUGS (1)
  1. IBANDRONATE SODIUM [Suspect]
     Active Substance: IBANDRONATE SODIUM
     Indication: Osteoporosis
     Dosage: 1 TABLET ONCE MONTHLY ORAL
     Route: 048
     Dates: start: 20240501

REACTIONS (8)
  - Headache [None]
  - Myalgia [None]
  - Abdominal pain upper [None]
  - Dyspepsia [None]
  - Nausea [None]
  - Pyrexia [None]
  - Chest pain [None]
  - Musculoskeletal chest pain [None]

NARRATIVE: CASE EVENT DATE: 20240502
